FAERS Safety Report 9829323 (Version 10)
Quarter: 2016Q1

REPORT INFORMATION
  Report Type: Report from Study
  Country: JP (occurrence: JP)
  Receive Date: 20140120
  Receipt Date: 20160122
  Transmission Date: 20160526
  Serious: Yes (Hospitalization)
  Sender: FDA-Public Use
  Company Number: JP-AMGEN-JPNCT2014003422

PATIENT
  Age: 49 Year
  Sex: Female
  Weight: 53 kg

DRUGS (34)
  1. PACLITAXEL. [Concomitant]
     Active Substance: PACLITAXEL
     Dosage: UNK
     Route: 065
     Dates: start: 20121228, end: 20130405
  2. BEVACIZUMAB [Concomitant]
     Active Substance: BEVACIZUMAB
     Dosage: UNK
     Route: 065
     Dates: start: 20121228, end: 20130405
  3. PROTECADIN [Concomitant]
     Active Substance: LAFUTIDINE
     Dosage: 20 MG, QD
     Route: 048
     Dates: start: 20121228, end: 20130418
  4. METHOTREXATE [Concomitant]
     Active Substance: METHOTREXATE
     Dosage: UNK
     Route: 065
     Dates: start: 20130726, end: 20131212
  5. KLARICID                           /00984601/ [Concomitant]
     Active Substance: CLARITHROMYCIN
     Dosage: 1 DF, BID
     Route: 065
     Dates: start: 20130304
  6. ALFAROL [Concomitant]
     Active Substance: ALFACALCIDOL
     Dosage: 1 MUG, QD
     Route: 048
     Dates: start: 20121207, end: 20140111
  7. CALCIUM LACTATE [Concomitant]
     Active Substance: CALCIUM LACTATE
     Dosage: 1 G, QD
     Route: 048
     Dates: start: 20121207, end: 20140111
  8. LOXONIN [Concomitant]
     Active Substance: LOXOPROFEN SODIUM
     Dosage: 60MG, AT THE TIME OF PAIN
     Route: 048
     Dates: start: 20130222, end: 20130606
  9. ERIBULIN [Concomitant]
     Active Substance: ERIBULIN
     Dosage: UNK
     Route: 065
     Dates: start: 20121026, end: 20121207
  10. ERIBULIN MESILATE [Concomitant]
     Active Substance: ERIBULIN
     Dosage: UNK
     Route: 065
     Dates: start: 20121026, end: 20121207
  11. MEIACT [Concomitant]
     Active Substance: CEFDITOREN PIVOXIL
     Dosage: 300 MG, UNK
     Route: 048
     Dates: start: 20130425, end: 20130425
  12. NAIXAN                             /00256201/ [Concomitant]
     Active Substance: NAPROXEN
     Dosage: 300 MG, UNK
     Route: 048
     Dates: start: 20130607, end: 20140111
  13. NEOSTELIN GREEN [Concomitant]
     Dosage: UNK
     Route: 050
  14. AMINOLEBAN                         /01982601/ [Concomitant]
     Active Substance: AMINO ACIDS
     Dosage: 500 ML, QD
     Route: 042
     Dates: start: 20140108, end: 20140114
  15. MORPHINE HYDROCHLORIDE [Concomitant]
     Active Substance: MORPHINE HYDROCHLORIDE
     Dosage: 20 MG, QD
     Route: 042
     Dates: start: 20140112, end: 20140114
  16. DECADRON [Concomitant]
     Active Substance: DEXAMETHASONE
     Dosage: UNK
     Route: 065
     Dates: start: 20130607, end: 20140111
  17. LASIX [Concomitant]
     Active Substance: FUROSEMIDE
     Dosage: 40 MG, UNK
     Route: 048
     Dates: start: 20131115, end: 20140114
  18. FOSMICIN                           /00552502/ [Concomitant]
     Dosage: 2 G, BID
     Route: 042
     Dates: start: 20131209
  19. NOVAMIN                            /00013304/ [Concomitant]
     Active Substance: PROCHLORPERAZINE MALEATE
     Dosage: 5 MG, QD
     Route: 030
     Dates: start: 20140112, end: 20140114
  20. DENOSUMAB [Suspect]
     Active Substance: DENOSUMAB
     Indication: METASTASES TO BONE
     Dosage: 120 MG, UNK
     Route: 058
     Dates: start: 20121207
  21. NAUZELIN [Concomitant]
     Active Substance: DOMPERIDONE
     Dosage: 30 MG, QD
     Route: 048
     Dates: start: 20130405, end: 20130412
  22. SAWACILLIN [Concomitant]
     Active Substance: AMOXICILLIN
     Dosage: 1 DF, QID
     Route: 065
     Dates: start: 20130329
  23. DEXART [Concomitant]
     Active Substance: DEXAMETHASONE SODIUM PHOSPHATE
     Dosage: UNK
     Route: 065
     Dates: start: 20140111, end: 20140114
  24. VINORELBINE [Concomitant]
     Active Substance: VINORELBINE\VINORELBINE TARTRATE
     Dosage: UNK
     Route: 065
     Dates: start: 20130426, end: 20130524
  25. FLUOROURACIL. [Concomitant]
     Active Substance: FLUOROURACIL
     Dosage: UNK
     Route: 065
     Dates: start: 20130726, end: 20131212
  26. ZOMETA [Suspect]
     Active Substance: ZOLEDRONIC ACID
     Indication: PRODUCT USED FOR UNKNOWN INDICATION
     Dosage: 4 MG, QD
     Route: 042
     Dates: start: 20080603, end: 20121116
  27. GEMCITABINE [Concomitant]
     Active Substance: GEMCITABINE\GEMCITABINE HYDROCHLORIDE
     Dosage: UNK
     Route: 065
     Dates: start: 20130614, end: 20130707
  28. CYCLOPHOSPHAMIDE. [Concomitant]
     Active Substance: CYCLOPHOSPHAMIDE
     Dosage: UNK
     Route: 065
     Dates: start: 20130726, end: 20131212
  29. AUGMENTIN [Concomitant]
     Active Substance: AMOXICILLIN\CLAVULANATE POTASSIUM
     Dosage: 1 DF, TID
     Route: 065
     Dates: start: 20140329
  30. MEROPENEM. [Concomitant]
     Active Substance: MEROPENEM
     Dosage: 0.5 G, BID
     Dates: start: 20131212
  31. TAKEPRON [Concomitant]
     Active Substance: LANSOPRAZOLE
     Dosage: 15 MG, QD
     Route: 048
     Dates: start: 20130607, end: 20140114
  32. ALDACTONE A [Concomitant]
     Active Substance: SPIRONOLACTONE
     Dosage: 50 MG, UNK
     Route: 048
     Dates: start: 20130823, end: 20140114
  33. GOSHAJINKIGAN [Concomitant]
     Active Substance: HERBALS
     Dosage: 7.5 G, QD
     Route: 048
     Dates: start: 20130208, end: 20130418
  34. SOLDACTONE [Concomitant]
     Active Substance: CANRENOATE POTASSIUM
     Dosage: 100 MG, QD
     Route: 042
     Dates: start: 20140111, end: 20140114

REACTIONS (2)
  - Osteonecrosis of jaw [Unknown]
  - Periorbital abscess [Unknown]

NARRATIVE: CASE EVENT DATE: 20121221
